FAERS Safety Report 16962617 (Version 2)
Quarter: 2020Q1

REPORT INFORMATION
  Report Type: Report from Study
  Country: US (occurrence: US)
  Receive Date: 20191025
  Receipt Date: 20200120
  Transmission Date: 20200409
  Serious: Yes (Death, Hospitalization, Other)
  Sender: FDA-Public Use
  Company Number: US-BAYER-2019-193009

PATIENT
  Age: 74 Year
  Sex: Male
  Weight: 78.46 kg

DRUGS (7)
  1. TORSEMIDE. [Concomitant]
     Active Substance: TORSEMIDE
     Dosage: 20 MG, BID
     Route: 048
  2. POTASSIUM CHLORIDE. [Concomitant]
     Active Substance: POTASSIUM CHLORIDE
     Dosage: 20 MEQ
  3. METOLAZONE. [Concomitant]
     Active Substance: METOLAZONE
     Dosage: 5 MG
  4. ADEMPAS [Suspect]
     Active Substance: RIOCIGUAT
     Indication: PULMONARY ARTERIAL HYPERTENSION
     Dosage: 2.5 MG, TID
     Route: 048
  5. O2 [OXYGEN] [Concomitant]
     Dosage: 3L/MIN 24/7,
  6. PRENATAL 1+1 [ASCORBIC ACID;CALCIUM;COLECALCIFEROL;COPPER;CYANOCOB [Concomitant]
     Dosage: 0.8 MG, QD
  7. ADEMPAS [Suspect]
     Active Substance: RIOCIGUAT
     Indication: PULMONARY ARTERIAL HYPERTENSION
     Dosage: UNK
     Route: 048
     Dates: start: 20170314

REACTIONS (18)
  - Hyponatraemia [None]
  - Death [Fatal]
  - Hypotension [None]
  - Pneumonia [None]
  - Respiratory failure [None]
  - Staphylococcal bacteraemia [None]
  - Right ventricular failure [None]
  - Septic shock [None]
  - Oliguria [None]
  - Hypoxia [None]
  - Ascites [None]
  - Sepsis [None]
  - Pulmonary arterial hypertension [None]
  - Nausea [None]
  - Malaise [None]
  - Pyrexia [None]
  - Urinary retention [None]
  - Thrombocytopenia [None]

NARRATIVE: CASE EVENT DATE: 201907
